FAERS Safety Report 5586331-0 (Version None)
Quarter: 2008Q1

REPORT INFORMATION
  Report Type: 
  Country: None (occurrence: None)
  Receive Date: 20080110
  Receipt Date: 20080102
  Transmission Date: 20080703
  Serious: Yes (Life-Threatening, Hospitalization, Other)
  Sender: FDA-Public Use
  Company Number: AU-JNJFOC-20070506645

PATIENT
  Sex: Male
  Weight: 85 kg

DRUGS (28)
  1. TMC114 [Suspect]
     Route: 048
  2. TMC114 [Suspect]
     Indication: HIV INFECTION
     Route: 048
  3. RITONAVIR [Suspect]
     Indication: HIV INFECTION
     Route: 048
  4. MARAVIROC [Suspect]
     Indication: HIV INFECTION
     Route: 048
  5. RALTEGRAVIR [Concomitant]
     Indication: HIV INFECTION
     Route: 048
  6. LAMIVUDINE [Concomitant]
     Indication: HIV INFECTION
     Route: 048
  7. CEFTRIAXONE [Concomitant]
     Indication: LOWER RESPIRATORY TRACT INFECTION
     Route: 042
  8. MIST MORPHINE [Concomitant]
     Route: 048
  9. CITALOPRAM [Concomitant]
     Route: 048
  10. AMOXIL [Concomitant]
     Route: 048
  11. ROXITHROMYCIN [Concomitant]
     Route: 048
  12. WARFARIN SODIUM [Concomitant]
     Route: 048
  13. ESCITALOPRAM OXALATE [Concomitant]
     Route: 048
  14. CORTATE [Concomitant]
     Route: 065
  15. FLORINEF [Concomitant]
     Route: 048
  16. DILATREND [Concomitant]
     Route: 048
  17. BACTRIM [Concomitant]
     Route: 048
  18. PRAVACHOL [Concomitant]
     Route: 048
  19. CALCITRIOL [Concomitant]
     Route: 048
  20. HYDROZOLE [Concomitant]
     Route: 061
  21. HYDROZOLE [Concomitant]
     Route: 061
  22. ORDINE [Concomitant]
     Route: 048
  23. ENDONE [Concomitant]
     Route: 048
  24. DIAZEPAM [Concomitant]
     Route: 065
  25. HYPNODORM [Concomitant]
     Route: 065
  26. FOSAMAX [Concomitant]
     Route: 048
  27. VITAMIN B [Concomitant]
     Route: 048
  28. FLUDROCORTISONE ACETATE [Concomitant]
     Route: 048

REACTIONS (22)
  - ANAEMIA [None]
  - BLOOD ALBUMIN DECREASED [None]
  - BLOOD CALCIUM DECREASED [None]
  - BLOOD GLUCOSE INCREASED [None]
  - BLOOD MAGNESIUM DECREASED [None]
  - BLOOD MAGNESIUM INCREASED [None]
  - BLOOD PHOSPHORUS DECREASED [None]
  - BLOOD PHOSPHORUS INCREASED [None]
  - BRADYCARDIA [None]
  - CHOLELITHIASIS [None]
  - COAGULOPATHY [None]
  - HAEMOPTYSIS [None]
  - HYPOKALAEMIA [None]
  - HYPOTENSION [None]
  - INTERNATIONAL NORMALISED RATIO INCREASED [None]
  - LOWER RESPIRATORY TRACT INFECTION [None]
  - PARAINFLUENZAE VIRUS INFECTION [None]
  - PNEUMOCYSTIS JIROVECI PNEUMONIA [None]
  - REFUSAL OF TREATMENT BY PATIENT [None]
  - RESPIRATORY ARREST [None]
  - SEPTIC SHOCK [None]
  - TACHYPNOEA [None]
